FAERS Safety Report 4411208-3 (Version None)
Quarter: 2004Q2

REPORT INFORMATION
  Report Type: 
  Country: None (occurrence: None)
  Receive Date: 20040630
  Receipt Date: 20040514
  Transmission Date: 20050107
  Serious: No
  Sender: FDA-Public Use
  Company Number: 04P-163-0261013-00

PATIENT
  Age: 72 Year
  Sex: Female
  Weight: 58.0604 kg

DRUGS (7)
  1. HUMIRA [Suspect]
     Indication: RHEUMATOID ARTHRITIS
     Dosage: 40 MG, 1 IN 2 WK, SUBCUTANEOUS
     Route: 058
     Dates: start: 20040512
  2. METHYLPREDNISOLONE [Concomitant]
  3. CELECOXIB [Concomitant]
  4. RISEDRONATE SODIUM [Concomitant]
  5. TRIAM [Concomitant]
  6. CALCIUM CARBONATE [Concomitant]
  7. MULTIVITAMIN [Concomitant]

REACTIONS (2)
  - HYPERSOMNIA [None]
  - PAIN EXACERBATED [None]
